FAERS Safety Report 21102478 (Version 1)
Quarter: 2022Q3

REPORT INFORMATION
  Report Type: Spontaneous
  Country: CN (occurrence: CN)
  Receive Date: 20220719
  Receipt Date: 20220719
  Transmission Date: 20221027
  Serious: Yes (Hospitalization, Other)
  Sender: FDA-Public Use
  Company Number: CN-009507513-2207CHN004281

PATIENT
  Sex: Male
  Weight: 63 kg

DRUGS (3)
  1. CILASTATIN SODIUM\IMIPENEM [Suspect]
     Active Substance: CILASTATIN SODIUM\IMIPENEM
     Indication: Sepsis
     Dosage: 1.0 G, Q12H
     Route: 041
     Dates: start: 20220528, end: 20220531
  2. LEVOFLOXACIN LACTATE [Suspect]
     Active Substance: LEVOFLOXACIN LACTATE
     Indication: Infection
     Dosage: 0.5 G, QD
     Route: 041
     Dates: start: 20220527, end: 20220531
  3. SODIUM CHLORIDE [Concomitant]
     Active Substance: SODIUM CHLORIDE
     Indication: Medication dilution
     Dosage: 50 ML, Q12H
     Route: 041
     Dates: start: 20220528, end: 20220531

REACTIONS (2)
  - Epilepsy [Recovered/Resolved]
  - Condition aggravated [Unknown]

NARRATIVE: CASE EVENT DATE: 20220101
